FAERS Safety Report 9443972 (Version 1)
Quarter: 2013Q3

REPORT INFORMATION
  Report Type: Spontaneous
  Country: US (occurrence: US)
  Receive Date: 20130807
  Receipt Date: 20130807
  Transmission Date: 20140515
  Serious: No
  Sender: FDA-Public Use
  Company Number: US-BIOGENIDEC-2013BI072061

PATIENT
  Sex: Female

DRUGS (1)
  1. AVONEX [Suspect]
     Indication: MULTIPLE SCLEROSIS
     Route: 030
     Dates: start: 20010101, end: 20010228

REACTIONS (3)
  - Abdominal pain upper [Not Recovered/Not Resolved]
  - Fungal skin infection [Recovered/Resolved]
  - Diarrhoea [Not Recovered/Not Resolved]
